FAERS Safety Report 12270536 (Version 1)
Quarter: 2016Q2

REPORT INFORMATION
  Report Type: Spontaneous
  Country: US (occurrence: None)
  Receive Date: 20160414
  Receipt Date: 20160414
  Transmission Date: 20160815
  Serious: Yes (Hospitalization, Disabling)
  Sender: FDA-Public Use
  Company Number: None

PATIENT
  Age: 33 Year
  Sex: Male
  Weight: 79.8 kg

DRUGS (2)
  1. VANCOMYCIN, 1500 MG [Suspect]
     Active Substance: VANCOMYCIN
     Indication: INFECTION
     Route: 042
  2. PIPERACILLIN/TAZOBACTAM, 3.375 G [Suspect]
     Active Substance: PIPERACILLIN SODIUM\TAZOBACTAM SODIUM
     Indication: INFECTION
     Route: 042

REACTIONS (3)
  - Renal failure [None]
  - No therapeutic response [None]
  - Haemodialysis [None]

NARRATIVE: CASE EVENT DATE: 20141013
